FAERS Safety Report 8381877-4 (Version None)
Quarter: 2012Q2

REPORT INFORMATION
  Report Type: 
  Country: None (occurrence: None)
  Receive Date: 20120522
  Receipt Date: 20120522
  Transmission Date: 20120825
  Serious: Yes (Other)
  Sender: FDA-Public Use
  Company Number: None

PATIENT
  Sex: Female
  Weight: 96.1626 kg

DRUGS (1)
  1. MIRENA [Suspect]
     Indication: CONTRACEPTION
     Dates: start: 20110519, end: 20120507

REACTIONS (9)
  - WEIGHT INCREASED [None]
  - DEPRESSION [None]
  - ANXIETY [None]
  - PARAESTHESIA [None]
  - MOOD SWINGS [None]
  - LIBIDO DECREASED [None]
  - BACK PAIN [None]
  - ALOPECIA [None]
  - THROMBOSIS [None]
